FAERS Safety Report 6246033-4 (Version None)
Quarter: 2009Q2

REPORT INFORMATION
  Report Type: 
  Country: None (occurrence: None)
  Receive Date: 20090626
  Receipt Date: 20081201
  Transmission Date: 20091009
  Serious: No
  Sender: FDA-Public Use
  Company Number: A0758741A

PATIENT
  Sex: Female

DRUGS (2)
  1. IMITREX [Suspect]
     Indication: MIGRAINE
     Dosage: 25MG AS REQUIRED
     Route: 048
     Dates: start: 19950101
  2. INDERAL [Concomitant]

REACTIONS (3)
  - DRUG INEFFECTIVE [None]
  - MIGRAINE [None]
  - THERAPEUTIC RESPONSE DELAYED [None]
